FAERS Safety Report 4923747-7 (Version None)
Quarter: 2006Q1

REPORT INFORMATION
  Report Type: 
  Country: None (occurrence: None)
  Receive Date: 20060227
  Receipt Date: 20060202
  Transmission Date: 20060701
  Serious: Yes (Hospitalization)
  Sender: FDA-Public Use
  Company Number: US-MERCK-0602USA01761

PATIENT
  Age: 65 Year
  Sex: Male

DRUGS (1)
  1. VIOXX [Suspect]
     Route: 048
     Dates: start: 19990804

REACTIONS (22)
  - ANGINA PECTORIS [None]
  - ARTHRALGIA [None]
  - ATELECTASIS [None]
  - ATRIAL FIBRILLATION [None]
  - BRONCHITIS [None]
  - CARDIAC FAILURE CONGESTIVE [None]
  - CARDIOMEGALY [None]
  - CHOLECYSTITIS ACUTE [None]
  - CORONARY ARTERY DISEASE [None]
  - DIVERTICULUM OESOPHAGEAL [None]
  - GASTROOESOPHAGEAL REFLUX DISEASE [None]
  - HAEMATOCHEZIA [None]
  - LYMPH NODE CALCIFICATION [None]
  - MYOCARDIAL INFARCTION [None]
  - OSTEOARTHRITIS [None]
  - PLEURAL EFFUSION [None]
  - POSTINFARCTION ANGINA [None]
  - RADIUS FRACTURE [None]
  - ROAD TRAFFIC ACCIDENT [None]
  - SINUSITIS [None]
  - SPINAL OSTEOARTHRITIS [None]
  - VENTRICULAR TACHYCARDIA [None]
